FAERS Safety Report 11813389 (Version 1)
Quarter: 2015Q4

REPORT INFORMATION
  Report Type: Spontaneous
  Country: US (occurrence: None)
  Receive Date: 20151207
  Receipt Date: 20151207
  Transmission Date: 20160305
  Serious: Yes (Other)
  Sender: FDA-Public Use
  Company Number: None

PATIENT
  Age: 41 Year
  Sex: Female
  Weight: 67.13 kg

DRUGS (9)
  1. HUMIRA [Concomitant]
     Active Substance: ADALIMUMAB
  2. HYDROCODONE-ACETAMINOP [Concomitant]
  3. MULTIVITAMINS [Concomitant]
     Active Substance: VITAMINS
  4. RASUVO [Suspect]
     Active Substance: METHOTREXATE SODIUM
     Indication: PSORIATIC ARTHROPATHY
     Dosage: 15 MG (1 SYRINGE) ?UNDER THE SKIN ONCE WEEKLY
     Route: 058
     Dates: start: 20151021, end: 20151103
  5. CLONAZEPAM. [Concomitant]
     Active Substance: CLONAZEPAM
  6. FOLIC ACID. [Concomitant]
     Active Substance: FOLIC ACID
  7. GABAPENTIN. [Concomitant]
     Active Substance: GABAPENTIN
  8. CYMBALTA [Concomitant]
     Active Substance: DULOXETINE HYDROCHLORIDE
  9. VITAMIN B12 [Concomitant]
     Active Substance: CYANOCOBALAMIN

REACTIONS (1)
  - Pancreatitis [None]

NARRATIVE: CASE EVENT DATE: 20151103
